FAERS Safety Report 9191950 (Version 3)
Quarter: 2013Q2

REPORT INFORMATION
  Report Type: Spontaneous
  Country: US (occurrence: US)
  Receive Date: 20130327
  Receipt Date: 20130429
  Transmission Date: 20140414
  Serious: No
  Sender: FDA-Public Use
  Company Number: US-BIOGENIDEC-2013BI026742

PATIENT
  Sex: Female

DRUGS (3)
  1. TYSABRI [Suspect]
     Indication: MULTIPLE SCLEROSIS
     Route: 042
  2. TYSABRI [Suspect]
     Indication: MULTIPLE SCLEROSIS
     Route: 042
     Dates: start: 20111018
  3. AVONEX [Concomitant]
     Indication: MULTIPLE SCLEROSIS
     Route: 030

REACTIONS (10)
  - Ear infection [Unknown]
  - Nasopharyngitis [Not Recovered/Not Resolved]
  - Nasal congestion [Unknown]
  - Dysphagia [Not Recovered/Not Resolved]
  - White blood cell count decreased [Unknown]
  - Ear pain [Unknown]
  - Salivary gland enlargement [Not Recovered/Not Resolved]
  - Deafness [Unknown]
  - Middle ear effusion [Unknown]
  - Oropharyngeal pain [Unknown]
